FAERS Safety Report 4721815-6 (Version None)
Quarter: 2005Q3

REPORT INFORMATION
  Report Type: 
  Country: None (occurrence: None)
  Receive Date: 20050720
  Receipt Date: 20050706
  Transmission Date: 20060218
  Serious: Yes (Life-Threatening)
  Sender: FDA-Public Use
  Company Number: 2005FR-00122

PATIENT
  Age: 54 Year
  Sex: Female
  Weight: 70 kg

DRUGS (6)
  1. ASPIRIN [Suspect]
     Indication: ANGINA PECTORIS
     Dosage: 75 MG, ORAL
     Route: 048
     Dates: end: 20050613
  2. ARCOXIA [Concomitant]
  3. CITALOPRAM [Concomitant]
  4. ADIZEM-XL [Concomitant]
  5. ALBUTEROL SULFATE HFA [Concomitant]
  6. SERETIDE [Concomitant]

REACTIONS (2)
  - GASTRIC ULCER HAEMORRHAGE [None]
  - UPPER GASTROINTESTINAL HAEMORRHAGE [None]
